FAERS Safety Report 4826097-2 (Version None)
Quarter: 2005Q4

REPORT INFORMATION
  Report Type: 
  Country: None (occurrence: None)
  Receive Date: 20051109
  Receipt Date: 20051028
  Transmission Date: 20060501
  Serious: Yes (Death, Other)
  Sender: FDA-Public Use
  Company Number: 2005149177

PATIENT
  Sex: Male

DRUGS (2)
  1. ACCUPRIL [Suspect]
     Indication: HYPOTENSION
  2. CLOZAPINE [Suspect]
     Indication: SCHIZOPHRENIA
     Dates: start: 19980101

REACTIONS (8)
  - CONSTIPATION [None]
  - CONVULSION [None]
  - DROOLING [None]
  - DRUG INTERACTION [None]
  - DRUG TOXICITY [None]
  - GENERAL PHYSICAL HEALTH DETERIORATION [None]
  - MALAISE [None]
  - MENTAL IMPAIRMENT [None]
